FAERS Safety Report 7007474-0 (Version None)
Quarter: 2010Q3

REPORT INFORMATION
  Report Type: 
  Country: None (occurrence: None)
  Receive Date: 20100922
  Receipt Date: 20100910
  Transmission Date: 20110219
  Serious: Yes (Other)
  Sender: FDA-Public Use
  Company Number: US-JNJFOC-20100905792

PATIENT
  Age: 90 Year
  Sex: Female
  Weight: 63.5 kg

DRUGS (6)
  1. EXTRA STRENGTH TYLENOL [Suspect]
     Indication: BACK PAIN
     Dosage: TAKEN ABOUT 4-5 TIMES PER WEEK
     Route: 048
  2. EXTRA STRENGTH TYLENOL [Suspect]
     Indication: ARTHRITIS
     Dosage: TAKEN ABOUT 4-5 TIMES PER WEEK
     Route: 048
  3. TRIMEPRAZINE [Concomitant]
     Indication: VENTRICULAR TACHYCARDIA
     Route: 048
  4. DILTIAZEM [Concomitant]
     Indication: VENTRICULAR TACHYCARDIA
     Route: 048
  5. FLECAINIDE ACETATE [Concomitant]
     Indication: VENTRICULAR TACHYCARDIA
     Route: 048
  6. BISOPROLOL FUMARATE [Concomitant]
     Indication: VENTRICULAR TACHYCARDIA
     Route: 048

REACTIONS (2)
  - DYSPHAGIA [None]
  - PHARYNGEAL HYPOAESTHESIA [None]
